FAERS Safety Report 6024017-9 (Version None)
Quarter: 2008Q4

REPORT INFORMATION
  Report Type: 
  Country: None (occurrence: None)
  Receive Date: 20081222
  Receipt Date: 20080930
  Transmission Date: 20090506
  Serious: No
  Sender: FDA-Public Use
  Company Number: ALL1-2008-02834

PATIENT
  Age: 19 Year
  Sex: Male

DRUGS (1)
  1. VYVANSE [Suspect]
     Indication: ATTENTION DEFICIT/HYPERACTIVITY DISORDER
     Dosage: 50 MG, 1X/DAY:QD, ORAL
     Route: 048
     Dates: start: 20070901, end: 20080914

REACTIONS (7)
  - AMNESIA [None]
  - DEPRESSION [None]
  - DRUG INEFFECTIVE [None]
  - DRY EYE [None]
  - INSOMNIA [None]
  - NIGHTMARE [None]
  - TIC [None]
